FAERS Safety Report 18926396 (Version 3)
Quarter: 2021Q1

REPORT INFORMATION
  Report Type: Report from Study
  Country: MY (occurrence: MY)
  Receive Date: 20210223
  Receipt Date: 20210329
  Transmission Date: 20210420
  Serious: Yes (Hospitalization)
  Sender: FDA-Public Use
  Company Number: MY-KARYOPHARM-2021KPT000198

PATIENT
  Age: 52 Year
  Sex: Female

DRUGS (2)
  1. SELINEXOR [Suspect]
     Active Substance: SELINEXOR
     Indication: PLASMA CELL MYELOMA
     Dosage: 100 MG
     Route: 048
     Dates: start: 20210205, end: 20210209
  2. SELINEXOR [Suspect]
     Active Substance: SELINEXOR
     Dosage: 80 MG
     Dates: start: 202103

REACTIONS (4)
  - Thrombocytopenia [Recovered/Resolved]
  - Petechiae [Recovered/Resolved]
  - Pneumonia escherichia [Recovered/Resolved]
  - Febrile neutropenia [Recovered/Resolved]

NARRATIVE: CASE EVENT DATE: 20210209
